FAERS Safety Report 6602517-8 (Version None)
Quarter: 2010Q1

REPORT INFORMATION
  Report Type: 
  Country: None (occurrence: None)
  Receive Date: 20100217
  Receipt Date: 20100205
  Transmission Date: 20100710
  Serious: Yes (Hospitalization)
  Sender: FDA-Public Use
  Company Number: 10US001257

PATIENT
  Age: 73 Year
  Sex: Female

DRUGS (6)
  1. STAVZOR [Suspect]
     Indication: BIPOLAR DISORDER
     Dosage: 500 MG, MORNING, ORAL
     Route: 048
     Dates: start: 20081021, end: 20091101
  2. STAVZOR [Suspect]
     Indication: BIPOLAR DISORDER
     Dosage: 500 MG, MORNING, ORAL
     Route: 048
     Dates: start: 20081021, end: 20091101
  3. EFFEXOR [Concomitant]
  4. SIMVASTATIN [Concomitant]
  5. NORVASC [Concomitant]
  6. TOPROL-XL [Concomitant]

REACTIONS (5)
  - APHASIA [None]
  - CONDITION AGGRAVATED [None]
  - DYSPHAGIA [None]
  - PNEUMONIA ASPIRATION [None]
  - UPPER MOTOR NEURONE LESION [None]
